FAERS Safety Report 14151434 (Version 1)
Quarter: 2017Q4

REPORT INFORMATION
  Report Type: Spontaneous
  Country: US (occurrence: None)
  Receive Date: 20171101
  Receipt Date: 20171101
  Transmission Date: 20180321
  Serious: Yes (Hospitalization)
  Sender: FDA-Public Use
  Company Number: None

PATIENT
  Age: 65 Year
  Sex: Male

DRUGS (1)
  1. LISINOPRIL. [Suspect]
     Active Substance: LISINOPRIL
     Indication: HYPERTENSION
     Dates: start: 20170907, end: 20170907

REACTIONS (7)
  - Drug screen negative [None]
  - Swelling face [None]
  - Angioedema [None]
  - Dyspnoea [None]
  - Therapy non-responder [None]
  - Blood creatinine increased [None]
  - Dysphagia [None]

NARRATIVE: CASE EVENT DATE: 20170907
